FAERS Safety Report 9878451 (Version 1)
Quarter: 2014Q1

REPORT INFORMATION
  Report Type: Spontaneous
  Country: US (occurrence: US)
  Receive Date: 20140206
  Receipt Date: 20140206
  Transmission Date: 20141002
  Serious: No
  Sender: FDA-Public Use
  Company Number: US-ALLERGAN-1311235US

PATIENT
  Sex: Female

DRUGS (3)
  1. BOTOX [Suspect]
     Indication: HYPERHIDROSIS
     Dosage: UNK
     Dates: start: 20130724, end: 20130724
  2. BOTOX [Suspect]
     Dosage: UNK
     Dates: start: 20130724, end: 20130724
  3. XANAX [Concomitant]
     Indication: PRODUCT USED FOR UNKNOWN INDICATION
     Dosage: UNK

REACTIONS (3)
  - Mental disorder [Unknown]
  - Off label use [Unknown]
  - Injection site pain [Unknown]
